FAERS Safety Report 12136372 (Version 1)
Quarter: 2016Q1

REPORT INFORMATION
  Report Type: Spontaneous
  Country: US (occurrence: US)
  Receive Date: 20160302
  Receipt Date: 20160302
  Transmission Date: 20160526
  Serious: No
  Sender: FDA-Public Use
  Company Number: US-PFIZER INC-2016120539

PATIENT
  Sex: Male

DRUGS (1)
  1. NICOTROL [Suspect]
     Active Substance: NICOTINE
     Dosage: UNK

REACTIONS (3)
  - Dysgeusia [Unknown]
  - Product taste abnormal [Unknown]
  - Ageusia [Unknown]
